FAERS Safety Report 4569165-5 (Version None)
Quarter: 2005Q1

REPORT INFORMATION
  Report Type: 
  Country: None (occurrence: None)
  Receive Date: 20050126
  Receipt Date: 20050110
  Transmission Date: 20050727
  Serious: Yes (Other)
  Sender: FDA-Public Use
  Company Number: 200510005BCA

PATIENT
  Age: 62 Year
  Sex: Female

DRUGS (6)
  1. GAMUNEX [Suspect]
     Dosage: 70 G, TOTAL DAILY, INTRAVENOUS
     Route: 042
     Dates: start: 20041123, end: 20041124
  2. GAMUNEX [Suspect]
  3. GAMUNEX [Suspect]
  4. GAMUNEX [Suspect]
  5. LOSEC [Concomitant]
  6. PREMARIN [Concomitant]

REACTIONS (1)
  - DEEP VEIN THROMBOSIS [None]
